FAERS Safety Report 10079414 (Version 1)
Quarter: 2014Q2

REPORT INFORMATION
  Report Type: Spontaneous
  Country: US (occurrence: US)
  Receive Date: 20140415
  Receipt Date: 20140415
  Transmission Date: 20141212
  Serious: Yes (Other)
  Sender: FDA-Public Use
  Company Number: US-PFIZER INC-2014100692

PATIENT
  Age: 26 Year
  Sex: Male

DRUGS (5)
  1. DOXORUBICIN HCL [Suspect]
     Indication: PRIMITIVE NEUROECTODERMAL TUMOUR
     Dosage: CYCLIC
  2. VINCRISTINE [Concomitant]
     Indication: PRIMITIVE NEUROECTODERMAL TUMOUR
     Dosage: CYCLIC
  3. CYCLOPHOSPHAMIDE [Concomitant]
     Indication: PRIMITIVE NEUROECTODERMAL TUMOUR
     Dosage: CYCLIC
  4. IFOSFAMIDE [Concomitant]
     Indication: PRIMITIVE NEUROECTODERMAL TUMOUR
     Dosage: CYCLIC
  5. ETOPOSIDE [Concomitant]
     Dosage: CYCLIC

REACTIONS (1)
  - Ventricular hypokinesia [Unknown]
